FAERS Safety Report 15639661 (Version 1)
Quarter: 2018Q4

REPORT INFORMATION
  Report Type: Spontaneous
  Country: US (occurrence: US)
  Receive Date: 20181120
  Receipt Date: 20181120
  Transmission Date: 20190205
  Serious: No
  Sender: FDA-Public Use
  Company Number: US-ENDO PHARMACEUTICALS INC-2018-032682

PATIENT
  Sex: Female

DRUGS (1)
  1. ALPRAZOLAM TABLETS 0.25 MG [Suspect]
     Active Substance: ALPRAZOLAM

REACTIONS (3)
  - Product substitution issue [Unknown]
  - Dysgeusia [Unknown]
  - Withdrawal syndrome [Unknown]
